FAERS Safety Report 11386953 (Version 1)
Quarter: 2015Q3

REPORT INFORMATION
  Report Type: Spontaneous
  Country: US (occurrence: None)
  Receive Date: 20150814
  Receipt Date: 20150814
  Transmission Date: 20151125
  Serious: Yes (Hospitalization)
  Sender: FDA-Public Use
  Company Number: None

PATIENT
  Age: 63 Year
  Sex: Female
  Weight: 75.2 kg

DRUGS (24)
  1. OXYCODONE [Suspect]
     Active Substance: OXYCODONE
     Indication: NEURALGIA
     Dosage: 15MG Q4HRS PRN PAIN PO  CHRONIC?
     Route: 048
  2. ALBUTEROL. [Concomitant]
     Active Substance: ALBUTEROL
  3. ELAVIL [Concomitant]
     Active Substance: AMITRIPTYLINE HYDROCHLORIDE
  4. CELEXA [Concomitant]
     Active Substance: CITALOPRAM HYDROBROMIDE
  5. VITAMIN B12 [Concomitant]
     Active Substance: CYANOCOBALAMIN
  6. NEURONTIN [Concomitant]
     Active Substance: GABAPENTIN
  7. COLACE [Concomitant]
     Active Substance: DOCUSATE SODIUM
  8. CLARITIN [Concomitant]
     Active Substance: LORATADINE
  9. ATENOLOL. [Concomitant]
     Active Substance: ATENOLOL
  10. BENTYL [Suspect]
     Active Substance: DICYCLOMINE HYDROCHLORIDE
  11. DICLOFENAC [Concomitant]
     Active Substance: DICLOFENAC
  12. NORCO [Suspect]
     Active Substance: ACETAMINOPHEN\HYDROCODONE BITARTRATE
  13. APAP [Concomitant]
     Active Substance: ACETAMINOPHEN
  14. ASA [Concomitant]
     Active Substance: ASPIRIN
  15. ARTHROTEC [Concomitant]
     Active Substance: DICLOFENAC SODIUM\MISOPROSTOL
  16. DILAUDID [Suspect]
     Active Substance: HYDROMORPHONE HYDROCHLORIDE
     Indication: NEURALGIA
     Dosage: 2MG Q4HR PRN PAIN PO CHRONIC
     Route: 048
  17. FLEXERIL [Suspect]
     Active Substance: CYCLOBENZAPRINE HYDROCHLORIDE
  18. PERCOCET [Suspect]
     Active Substance: ACETAMINOPHEN\OXYCODONE HYDROCHLORIDE
  19. PLAVIX [Concomitant]
     Active Substance: CLOPIDOGREL BISULFATE
  20. FERGON [Concomitant]
     Active Substance: FERROUS GLUCONATE
  21. PRAVACHOL [Concomitant]
     Active Substance: PRAVASTATIN SODIUM
  22. PHENERGAN [Suspect]
     Active Substance: PROMETHAZINE HYDROCHLORIDE
  23. FOLVITE [Concomitant]
     Active Substance: FOLIC ACID
  24. PRILOSEC [Concomitant]
     Active Substance: OMEPRAZOLE MAGNESIUM

REACTIONS (7)
  - Encephalopathy [None]
  - Escherichia urinary tract infection [None]
  - Respiratory disorder [None]
  - Sedation [None]
  - Overdose [None]
  - Somnolence [None]
  - Mental status changes [None]

NARRATIVE: CASE EVENT DATE: 20150212
